FAERS Safety Report 23197914 (Version 1)
Quarter: 2023Q4

REPORT INFORMATION
  Report Type: Spontaneous
  Country: US (occurrence: None)
  Receive Date: 20231117
  Receipt Date: 20231117
  Transmission Date: 20240110
  Serious: Yes (Life-Threatening, Hospitalization)
  Sender: FDA-Public Use
  Company Number: None

PATIENT
  Age: 43 Year
  Sex: Female

DRUGS (3)
  1. PEMBROLIZUMAB [Suspect]
     Active Substance: PEMBROLIZUMAB
  2. PEMETREXED [Suspect]
     Active Substance: PEMETREXED
  3. CARBOPLATIN [Suspect]
     Active Substance: CARBOPLATIN

REACTIONS (5)
  - Asthenia [None]
  - Pneumonia [None]
  - Pneumonia pneumococcal [None]
  - Enterovirus test positive [None]
  - Human rhinovirus test positive [None]

NARRATIVE: CASE EVENT DATE: 20230918
